FAERS Safety Report 5608959-1 (Version None)
Quarter: 2008Q1

REPORT INFORMATION
  Report Type: 
  Country: None (occurrence: None)
  Receive Date: 20080129
  Receipt Date: 20080129
  Transmission Date: 20080703
  Serious: Yes (Disabling)
  Sender: FDA-Public Use
  Company Number: None

PATIENT
  Age: 37 Year
  Sex: Female
  Weight: 83.9154 kg

DRUGS (1)
  1. YASMIN [Suspect]
     Indication: DYSMENORRHOEA
     Dosage: 30 MCG ETHINYL ESTRADIOL DAILY PO
     Route: 048
     Dates: start: 20071209, end: 20080117

REACTIONS (2)
  - PHLEBITIS [None]
  - VENOUS THROMBOSIS [None]
